FAERS Safety Report 5296008-7 (Version None)
Quarter: 2007Q2

REPORT INFORMATION
  Report Type: 
  Country: None (occurrence: None)
  Receive Date: 20070406
  Receipt Date: 20070327
  Transmission Date: 20071010
  Serious: Yes (Life-Threatening)
  Sender: FDA-Public Use
  Company Number: 237757

PATIENT
  Age: 65 Year
  Sex: Female

DRUGS (10)
  1. RITUXAN [Suspect]
     Indication: NON-HODGKIN'S LYMPHOMA
     Dosage: 500 MG, UNK, INTRAVENOUS
     Route: 042
     Dates: start: 20031225, end: 20061023
  2. DOXORUBICIN HCL [Suspect]
     Indication: NON-HODGKIN'S LYMPHOMA
     Dosage: 75 MG, UNK, INTRAVENOUS
     Route: 042
     Dates: start: 20031227, end: 20040124
  3. CYCLOPHOSPHAMIDE [Suspect]
     Indication: NON-HODGKIN'S LYMPHOMA
     Dosage: 1000 MG, UNK, INTRAVENOUS
     Route: 042
     Dates: start: 20031227, end: 20040124
  4. ONCOVIN [Suspect]
     Indication: NON-HODGKIN'S LYMPHOMA
     Dosage: 2 MG, UNK, INTRAVENOUS
     Route: 042
     Dates: start: 20031227, end: 20040124
  5. PREDNISOLONE [Suspect]
     Indication: NON-HODGKIN'S LYMPHOMA
     Dosage: 100 MG, UNK, INTRAVENOUS
     Route: 042
     Dates: start: 20031227, end: 20040128
  6. CARBOPLATIN [Suspect]
     Indication: NON-HODGKIN'S LYMPHOMA
     Dosage: 125 MG, UNK, INTRAVENOUS
     Route: 042
     Dates: start: 20051220, end: 20060207
  7. ETOPOSIDE [Suspect]
     Indication: NON-HODGKIN'S LYMPHOMA
     Dosage: 75 MG, UNK, INTRAVENOUS
     Route: 042
     Dates: start: 20051220, end: 20060207
  8. CYTARABINE [Suspect]
     Indication: NON-HODGKIN'S LYMPHOMA
     Dosage: 250 MG, UNK, INTRAVENOUS
     Route: 042
     Dates: start: 20051224, end: 20060207
  9. METHYLPREDNISOLONE [Suspect]
     Indication: NON-HODGKIN'S LYMPHOMA
     Dosage: 500 MG, UNK, INTRAVENOUS
     Route: 042
     Dates: start: 20051224, end: 20060211
  10. CISPLATIN [Concomitant]

REACTIONS (1)
  - GASTRIC CANCER [None]
